FAERS Safety Report 25427967 (Version 1)
Quarter: 2025Q2

REPORT INFORMATION
  Report Type: Spontaneous
  Country: US (occurrence: US)
  Receive Date: 20250612
  Receipt Date: 20250612
  Transmission Date: 20250716
  Serious: No
  Sender: BIOFRONTERA BIOSCIENCE
  Company Number: US-Biofrontera-2025BIO00088

PATIENT

DRUGS (1)
  1. AMELUZ [Suspect]
     Active Substance: AMINOLEVULINIC ACID HYDROCHLORIDE
     Indication: Actinic keratosis
     Route: 050
     Dates: start: 20250602, end: 20250602

REACTIONS (1)
  - Skin reaction [Unknown]

NARRATIVE: CASE EVENT DATE: 20250602
